FAERS Safety Report 7388848-5 (Version None)
Quarter: 2011Q2

REPORT INFORMATION
  Report Type: 
  Country: None (occurrence: None)
  Receive Date: 20110401
  Receipt Date: 20110324
  Transmission Date: 20111010
  Serious: Yes (Hospitalization, Other)
  Sender: FDA-Public Use
  Company Number: FR-NOVOPROD-325244

PATIENT
  Age: 72 Year
  Sex: Male
  Weight: 81 kg

DRUGS (6)
  1. SOTALOL HCL [Concomitant]
     Dosage: 80 MG, QD
     Route: 048
  2. VICTOZA [Suspect]
     Indication: PRODUCT USED FOR UNKNOWN INDICATION
     Dosage: 0.6 MG, QD
     Route: 058
     Dates: start: 20110312, end: 20110313
  3. HYZAAR [Concomitant]
     Dosage: 1
     Route: 048
  4. LYRICA [Concomitant]
     Indication: NEURALGIA
     Dosage: 500 MG, QD
     Route: 048
  5. DIAMICRON [Concomitant]
     Indication: TYPE 2 DIABETES MELLITUS
     Dosage: 90 MG, QD
     Route: 048
  6. EUCREAS [Concomitant]
     Indication: TYPE 2 DIABETES MELLITUS
     Dosage: 2
     Route: 048

REACTIONS (1)
  - PANCREATITIS [None]
